FAERS Safety Report 6197056-5 (Version None)
Quarter: 2009Q2

REPORT INFORMATION
  Report Type: 
  Country: None (occurrence: None)
  Receive Date: 20090520
  Receipt Date: 20090512
  Transmission Date: 20091009
  Serious: Yes (Other)
  Sender: FDA-Public Use
  Company Number: GR-SANOFI-SYNTHELABO-A01200601169

PATIENT
  Age: 67 Year
  Sex: Female

DRUGS (6)
  1. WARFARIN SODIUM [Concomitant]
     Indication: DRUG USE FOR UNKNOWN INDICATION
     Dosage: UNK
     Route: 065
  2. FUROSEMIDE [Concomitant]
     Indication: DRUG USE FOR UNKNOWN INDICATION
     Dosage: UNK
     Route: 065
  3. CAPTOPRIL [Concomitant]
     Indication: DRUG USE FOR UNKNOWN INDICATION
     Dosage: UNK
     Route: 065
  4. ZOLPIDEM [Suspect]
     Dosage: UNK
     Route: 065
  5. AMIODARONE [Interacting]
     Indication: DRUG USE FOR UNKNOWN INDICATION
     Dosage: 450 MG
     Route: 042
  6. AMIODARONE [Interacting]
     Dosage: 900 MG
     Route: 042

REACTIONS (5)
  - DRUG INTERACTION [None]
  - ELECTROCARDIOGRAM QT PROLONGED [None]
  - PALPITATIONS [None]
  - TORSADE DE POINTES [None]
  - VENTRICULAR FIBRILLATION [None]
